FAERS Safety Report 4854371-2 (Version None)
Quarter: 2005Q4

REPORT INFORMATION
  Report Type: 
  Country: None (occurrence: None)
  Receive Date: 20051215
  Receipt Date: 20051021
  Transmission Date: 20060501
  Serious: Yes (Death)
  Sender: FDA-Public Use
  Company Number: JP-SOLVAY-00305003435

PATIENT
  Age: 17148 Day
  Sex: Female

DRUGS (4)
  1. LUVOX [Suspect]
     Indication: DEPRESSION
     Dosage: DAILY DOSE: 200 MILLIGRAM(S)
     Route: 048
     Dates: start: 20050430, end: 20051016
  2. LULLAN [Suspect]
     Indication: DEPRESSION
     Dosage: DAILY DOSE: 8 MILLIGRAM(S)
     Route: 048
     Dates: start: 20040920, end: 20051016
  3. DESYREL [Suspect]
     Indication: DEPRESSION
     Dosage: DAILY DOSE: 50 MILLIGRAM(S)
     Route: 048
     Dates: start: 20040817, end: 20051016
  4. NELBON [Suspect]
     Indication: DEPRESSION
     Dosage: DAILY DOSE: 5 MILLIGRAM(S)
     Route: 048
     Dates: start: 20040817, end: 20051016

REACTIONS (4)
  - COMPLETED SUICIDE [None]
  - CONVULSION [None]
  - DRUG TOXICITY [None]
  - RESPIRATORY ARREST [None]
